FAERS Safety Report 11128556 (Version 1)
Quarter: 2015Q2

REPORT INFORMATION
  Report Type: Spontaneous
  Country: US (occurrence: US)
  Receive Date: 20150521
  Receipt Date: 20150521
  Transmission Date: 20150821
  Serious: Yes (Death, Other)
  Sender: FDA-Public Use
  Company Number: US-BRISTOL-MYERS SQUIBB COMPANY-BMS-2015-030789

PATIENT
  Age: 57 Year
  Sex: Male

DRUGS (1)
  1. ERBITUX [Suspect]
     Active Substance: CETUXIMAB
     Indication: LARYNGEAL CANCER
     Dosage: UNK
     Route: 042
     Dates: start: 20150505, end: 20150505

REACTIONS (7)
  - Productive cough [Unknown]
  - Death [Fatal]
  - Abdominal pain upper [Unknown]
  - Back pain [Unknown]
  - Chest pain [Unknown]
  - Dyspepsia [Unknown]
  - Musculoskeletal pain [Unknown]

NARRATIVE: CASE EVENT DATE: 20150505
